FAERS Safety Report 12036896 (Version 7)
Quarter: 2020Q3

REPORT INFORMATION
  Report Type: Report from Study
  Country: IT (occurrence: IT)
  Receive Date: 20160208
  Receipt Date: 20200708
  Transmission Date: 20201102
  Serious: Yes (Other)
  Sender: FDA-Public Use
  Company Number: IT-AEGERION PHARMACEUTICALS INC-AEGR002253

PATIENT

DRUGS (16)
  1. ROSUVASTATIN. [Concomitant]
     Active Substance: ROSUVASTATIN
     Indication: HYPERCHOLESTEROLAEMIA
     Dosage: 10 MG, QD
     Route: 048
     Dates: start: 20150112, end: 20150427
  2. OMEGA DAILY [Concomitant]
     Indication: PROPHYLAXIS
  3. SILACT [Concomitant]
     Indication: SUPPLEMENTATION THERAPY
     Dosage: 1 TABLET, QD
     Route: 048
     Dates: start: 20150422
  4. LOJUXTA AMRYT [Suspect]
     Active Substance: LOMITAPIDE MESYLATE
     Indication: TYPE IIA HYPERLIPIDAEMIA
     Dosage: 5 MG, QD
     Dates: start: 20150422, end: 20150824
  5. IRON [Concomitant]
     Active Substance: IRON
     Indication: PROPHYLAXIS
     Dosage: 40 GTT, QD
     Route: 048
     Dates: start: 20150108
  6. SURSUM [Concomitant]
     Indication: SUPPLEMENTATION THERAPY
     Dosage: 1 TABLET, QD
     Route: 048
     Dates: start: 20150422
  7. ROSUVASTATIN. [Concomitant]
     Active Substance: ROSUVASTATIN
     Dosage: 5 MG, QD
     Route: 048
     Dates: end: 201504
  8. FAT EMULSION NOS [Concomitant]
     Active Substance: EGG PHOSPHOLIPIDS\SAFFLOWER OIL\SOYBEAN OIL
     Indication: PRODUCT USED FOR UNKNOWN INDICATION
  9. FISH OIL [Concomitant]
     Active Substance: FISH OIL
     Indication: PRODUCT USED FOR UNKNOWN INDICATION
     Dosage: UNK
  10. LOJUXTA AMRYT [Suspect]
     Active Substance: LOMITAPIDE MESYLATE
     Dosage: 10 MG, QD
     Dates: start: 20150825, end: 20151025
  11. LOJUXTA AMRYT [Suspect]
     Active Substance: LOMITAPIDE MESYLATE
     Dosage: 20 MG, QD
     Dates: start: 20151026
  12. ASA [Concomitant]
     Active Substance: ASPIRIN
     Indication: PROPHYLAXIS
     Dosage: 100 MG, QD
     Route: 048
  13. FUROSEMIDE. [Concomitant]
     Active Substance: FUROSEMIDE
     Indication: PROPHYLAXIS
     Dosage: 12.5 MG, PRN
     Route: 048
     Dates: start: 20150108
  14. OMEGA DAILY [Concomitant]
     Indication: SUPPLEMENTATION THERAPY
     Dosage: 1 TABLET, QD
     Route: 048
     Dates: start: 20150422
  15. EZETIMIBE. [Concomitant]
     Active Substance: EZETIMIBE
     Indication: HYPERCHOLESTEROLAEMIA
     Dosage: 10 MG, QD
     Route: 048
     Dates: start: 20140303, end: 20150427
  16. VITAMIN E                          /00110501/ [Concomitant]
     Active Substance: TOCOPHEROL
     Indication: PRODUCT USED FOR UNKNOWN INDICATION

REACTIONS (3)
  - Diarrhoea [Recovered/Resolved]
  - Therapy cessation [Unknown]
  - Hepatic steatosis [Not Recovered/Not Resolved]

NARRATIVE: CASE EVENT DATE: 20150720
